FAERS Safety Report 13875051 (Version 1)
Quarter: 2017Q3

REPORT INFORMATION
  Report Type: Spontaneous
  Country: US (occurrence: US)
  Receive Date: 20170816
  Receipt Date: 20170816
  Transmission Date: 20171127
  Serious: Yes (Disabling, Other)
  Sender: FDA-Public Use
  Company Number: US-ROCHE-1352920

PATIENT
  Age: 92 Year
  Sex: Male

DRUGS (7)
  1. FUROSEMIDE. [Concomitant]
     Active Substance: FUROSEMIDE
     Route: 048
  2. LASIX [Concomitant]
     Active Substance: FUROSEMIDE
     Dosage: YZ
     Route: 048
  3. LUCENTIS [Suspect]
     Active Substance: RANIBIZUMAB
     Indication: NEOVASCULAR AGE-RELATED MACULAR DEGENERATION
  4. TRIAZOLAM. [Concomitant]
     Active Substance: TRIAZOLAM
     Indication: SLEEP DISORDER
     Route: 048
  5. CASODEX [Concomitant]
     Active Substance: BICALUTAMIDE
     Indication: NEOPLASM MALIGNANT
     Route: 048
  6. LUCENTIS [Suspect]
     Active Substance: RANIBIZUMAB
     Indication: NEOVASCULAR AGE-RELATED MACULAR DEGENERATION
     Dosage: TREATMENT PLAN: 13 WEEKS
     Route: 050
     Dates: start: 20070712, end: 20140121
  7. COSOPT [Concomitant]
     Active Substance: DORZOLAMIDE HYDROCHLORIDE\TIMOLOL MALEATE
     Indication: INTRAOCULAR PRESSURE TEST ABNORMAL
     Dosage: DOSE: 1-2 DROPS
     Route: 061

REACTIONS (1)
  - Endophthalmitis [Unknown]

NARRATIVE: CASE EVENT DATE: 20140125
